FAERS Safety Report 4427518-X (Version None)
Quarter: 2004Q3

REPORT INFORMATION
  Report Type: 
  Country: None (occurrence: None)
  Receive Date: 20040816
  Receipt Date: 20040804
  Transmission Date: 20050211
  Serious: Yes (Disabling)
  Sender: FDA-Public Use
  Company Number: 2004CG01380

PATIENT
  Age: 63 Year
  Sex: Male
  Weight: 76 kg

DRUGS (4)
  1. CRESTOR [Suspect]
     Indication: HYPERCHOLESTEROLAEMIA
     Dosage: 10 MG DAILY PO
     Route: 048
     Dates: start: 20040705, end: 20040709
  2. VERAPAMIL [Concomitant]
  3. ASPIRIN [Concomitant]
  4. OGAST [Concomitant]

REACTIONS (2)
  - MUSCLE STRAIN [None]
  - PAIN [None]
